FAERS Safety Report 4423206-4 (Version None)
Quarter: 2004Q3

REPORT INFORMATION
  Report Type: 
  Country: None (occurrence: None)
  Receive Date: 20040713
  Receipt Date: 20031003
  Transmission Date: 20050211
  Serious: No
  Sender: FDA-Public Use
  Company Number: PHEH2003US09113

PATIENT
  Age: 68 Year
  Sex: Female

DRUGS (1)
  1. ELIDEL [Suspect]
     Indication: DERMATITIS CONTACT
     Dosage: TOPICAL
     Route: 061
     Dates: start: 20030728, end: 20030901

REACTIONS (5)
  - APPLICATION SITE BURNING [None]
  - APPLICATION SITE ERYTHEMA [None]
  - APPLICATION SITE PAIN [None]
  - LACRIMATION INCREASED [None]
  - SKIN DESQUAMATION [None]
